FAERS Safety Report 8984678 (Version 1)
Quarter: 2012Q4

REPORT INFORMATION
  Report Type: 
  Country: CA (occurrence: CA)
  Receive Date: 20121225
  Receipt Date: 20121225
  Transmission Date: 20130627
  Serious: Yes (Other)
  Sender: FDA-Public Use
  Company Number: CA-JNJFOC-20121208001

PATIENT
  Age: 58 Year
  Sex: Male

DRUGS (2)
  1. TRAMACET [Suspect]
     Indication: ARTHRALGIA
     Dosage: 325-37.5 mg every 4 hours
     Route: 048
     Dates: start: 20121110, end: 20121111
  2. LYRICA [Suspect]
     Indication: ARTHRALGIA
     Dosage: daily at bedtime
     Route: 065
     Dates: start: 20121110

REACTIONS (4)
  - Angina pectoris [Not Recovered/Not Resolved]
  - Hyperhidrosis [Recovered/Resolved]
  - Nausea [Recovered/Resolved]
  - Malaise [Not Recovered/Not Resolved]
